FAERS Safety Report 17842341 (Version 1)
Quarter: 2020Q2

REPORT INFORMATION
  Report Type: Spontaneous
  Country: CA (occurrence: CA)
  Receive Date: 20200529
  Receipt Date: 20200529
  Transmission Date: 20200714
  Serious: Yes (Other)
  Sender: FDA-Public Use
  Company Number: NVSC2020CA148963

PATIENT
  Age: 84 Year
  Sex: Female

DRUGS (1)
  1. AZOPT [Suspect]
     Active Substance: BRINZOLAMIDE
     Indication: PRODUCT USED FOR UNKNOWN INDICATION
     Dosage: SINCE 3 OR 4 YEARS
     Route: 065

REACTIONS (2)
  - Cataract [Unknown]
  - Rhinorrhoea [Not Recovered/Not Resolved]
